FAERS Safety Report 14272641 (Version 2)
Quarter: 2018Q1

REPORT INFORMATION
  Report Type: Report from Study
  Country: US (occurrence: US)
  Receive Date: 20171211
  Receipt Date: 20180219
  Transmission Date: 20180508
  Serious: Yes (Hospitalization)
  Sender: FDA-Public Use
  Company Number: US-ACTELION-A-US2017-153989

PATIENT
  Age: 58 Year
  Sex: Female
  Weight: 59.86 kg

DRUGS (6)
  1. REVATIO [Concomitant]
     Active Substance: SILDENAFIL CITRATE
  2. VELETRI [Suspect]
     Active Substance: EPOPROSTENOL
     Indication: PULMONARY ARTERIAL HYPERTENSION
     Dosage: 80 NG/KG/MIN
     Route: 042
  3. LETAIRIS [Concomitant]
     Active Substance: AMBRISENTAN
  4. VELETRI [Suspect]
     Active Substance: EPOPROSTENOL
     Dosage: 86 NG/KG, PER MIN
     Route: 042
  5. WARFARIN [Concomitant]
     Active Substance: WARFARIN
  6. ADCIRCA [Concomitant]
     Active Substance: TADALAFIL

REACTIONS (8)
  - Abdominal distension [Recovering/Resolving]
  - Lung transplant [Unknown]
  - Dyspnoea [Recovering/Resolving]
  - Nausea [Unknown]
  - Weight increased [Unknown]
  - Pulmonary hypertension [Unknown]
  - Fluid overload [Unknown]
  - Pain in jaw [Not Recovered/Not Resolved]

NARRATIVE: CASE EVENT DATE: 201706
